FAERS Safety Report 18597448 (Version 1)
Quarter: 2020Q4

REPORT INFORMATION
  Report Type: Spontaneous
  Country: US (occurrence: US)
  Receive Date: 20201209
  Receipt Date: 20201209
  Transmission Date: 20210114
  Serious: No
  Sender: FDA-Public Use
  Company Number: US-IBSA PHARMA INC.-2020IBS000182

PATIENT

DRUGS (6)
  1. TIROSINT [Suspect]
     Active Substance: LEVOTHYROXINE SODIUM
     Indication: THYROID HORMONE REPLACEMENT THERAPY
     Dosage: 112 ?G, QD
     Route: 048
     Dates: start: 201902, end: 202005
  2. CLONAZEPAM. [Concomitant]
     Active Substance: CLONAZEPAM
     Indication: PRODUCT USED FOR UNKNOWN INDICATION
     Dosage: UNK AS DIRECTED
     Route: 048
  3. FORTEO [Concomitant]
     Active Substance: TERIPARATIDE
     Indication: PRODUCT USED FOR UNKNOWN INDICATION
     Dosage: UNK, AS DIRECTED
     Route: 058
     Dates: start: 201912, end: 20200827
  4. TIROSINT [Suspect]
     Active Substance: LEVOTHYROXINE SODIUM
     Dosage: 100 ?G, QD
     Route: 048
     Dates: start: 202005
  5. FORTEO [Concomitant]
     Active Substance: TERIPARATIDE
     Dosage: UNK, QD
     Route: 042
     Dates: start: 20200827
  6. TRAMADOL. [Concomitant]
     Active Substance: TRAMADOL
     Indication: PRODUCT USED FOR UNKNOWN INDICATION
     Dosage: UNK, AS DIRECTED
     Route: 048

REACTIONS (6)
  - Thyroxine free increased [Unknown]
  - Feeling jittery [Unknown]
  - Fatigue [Unknown]
  - Anxiety [Unknown]
  - Palpitations [Unknown]
  - Feeling hot [Unknown]

NARRATIVE: CASE EVENT DATE: 202009
